FAERS Safety Report 6005333-3 (Version None)
Quarter: 2008Q4

REPORT INFORMATION
  Report Type: 
  Country: None (occurrence: None)
  Receive Date: 20081216
  Receipt Date: 20081208
  Transmission Date: 20090506
  Serious: Yes (Other)
  Sender: FDA-Public Use
  Company Number: AT-GENENTECH-273692

PATIENT
  Age: 74 Year
  Sex: Male

DRUGS (2)
  1. BEVACIZUMAB [Suspect]
     Indication: MACULAR DEGENERATION
     Route: 031
  2. BEVACIZUMAB [Suspect]
     Dosage: 2.5 MG, UNK
     Route: 031

REACTIONS (2)
  - HYPERAEMIA [None]
  - UVEITIS [None]
